FAERS Safety Report 24727676 (Version 1)
Quarter: 2024Q4

REPORT INFORMATION
  Report Type: Spontaneous
  Country: US (occurrence: US)
  Receive Date: 20241212
  Receipt Date: 20241212
  Transmission Date: 20250114
  Serious: Yes (Hospitalization, Other)
  Sender: UCB
  Company Number: US-UCBSA-2024063714

PATIENT
  Age: 27 Year
  Sex: Female

DRUGS (1)
  1. BRIVIACT [Suspect]
     Active Substance: BRIVARACETAM
     Indication: Seizure
     Dosage: UNK

REACTIONS (7)
  - Pneumonia aspiration [Unknown]
  - Pneumonia [Unknown]
  - Gastroenteritis salmonella [Unknown]
  - Gastrooesophageal reflux disease [Unknown]
  - Pylorospasm [Unknown]
  - Gastrostomy tube site complication [Unknown]
  - Wrong technique in product usage process [Unknown]
